FAERS Safety Report 18517337 (Version 1)
Quarter: 2020Q4

REPORT INFORMATION
  Report Type: Spontaneous
  Country: US (occurrence: US)
  Receive Date: 20201118
  Receipt Date: 20201118
  Transmission Date: 20210114
  Serious: Yes (Death)
  Sender: FDA-Public Use
  Company Number: None

PATIENT
  Age: 32 Year
  Sex: Female

DRUGS (2)
  1. LEVOMILNACIPRAN [Suspect]
     Active Substance: LEVOMILNACIPRAN
  2. ARMODAFINIL. [Suspect]
     Active Substance: ARMODAFINIL

REACTIONS (6)
  - Hypothermia [None]
  - Stress cardiomyopathy [None]
  - Cardiac arrest [None]
  - Long QT syndrome [None]
  - Cardiac pacemaker insertion [None]
  - Decreased appetite [None]

NARRATIVE: CASE EVENT DATE: 20200704
